FAERS Safety Report 6737751-X (Version None)
Quarter: 2010Q2

REPORT INFORMATION
  Report Type: 
  Country: None (occurrence: None)
  Receive Date: 20100524
  Receipt Date: 20100519
  Transmission Date: 20101027
  Serious: Yes (Death)
  Sender: FDA-Public Use
  Company Number: PHHY2010US32643

PATIENT
  Weight: 45.71 kg

DRUGS (1)
  1. EXJADE [Suspect]
     Indication: MINERAL METABOLISM DISORDER
     Dosage: 750 MG/DAY
     Route: 048
     Dates: start: 20091201, end: 20100401

REACTIONS (1)
  - DEATH [None]
